FAERS Safety Report 25793160 (Version 1)
Quarter: 2025Q3

REPORT INFORMATION
  Report Type: Spontaneous
  Country: US (occurrence: None)
  Receive Date: 20250911
  Receipt Date: 20250911
  Transmission Date: 20251021
  Serious: Yes (Other)
  Sender: FDA-CTU
  Company Number: None

PATIENT
  Age: 70 Year
  Sex: Female
  Weight: 94.05 kg

DRUGS (1)
  1. HYALURONIDASE (HUMAN RECOMBINANT)\TRASTUZUMAB [Suspect]
     Active Substance: HYALURONIDASE (HUMAN RECOMBINANT)\TRASTUZUMAB
     Indication: Endometrial cancer
     Route: 058
     Dates: start: 20241031, end: 20250911

REACTIONS (1)
  - Crepitations [None]

NARRATIVE: CASE EVENT DATE: 20250911
